FAERS Safety Report 9496257 (Version 3)
Quarter: 2013Q4

REPORT INFORMATION
  Report Type: Spontaneous
  Country: US (occurrence: US)
  Receive Date: 20130904
  Receipt Date: 20131029
  Transmission Date: 20140711
  Serious: Yes (Other)
  Sender: FDA-Public Use
  Company Number: US-INCYTE CORPORATION-2013IN001369

PATIENT
  Age: 66 Year
  Sex: Female
  Weight: 78.01 kg

DRUGS (5)
  1. JAKAFI [Suspect]
     Indication: MYELOFIBROSIS
     Dosage: 15 MG, BID
     Route: 048
     Dates: start: 20121030
  2. LEVOTHYROXINE [Suspect]
     Dosage: 112 MCG, UNK
  3. LOPRESSOR [Concomitant]
     Dosage: 12.5 MG, BID
  4. EFFEXOR [Concomitant]
     Dosage: 75 MG, UNK
  5. ALBUTEROL [Concomitant]
     Dosage: NOT SPECIFIED, PRN

REACTIONS (2)
  - Blood thyroid stimulating hormone increased [Recovered/Resolved]
  - Thyroxine increased [Recovered/Resolved]
